FAERS Safety Report 9863829 (Version 2)
Quarter: 2014Q2

REPORT INFORMATION
  Report Type: Spontaneous
  Country: CA (occurrence: CA)
  Receive Date: 20140203
  Receipt Date: 20140610
  Transmission Date: 20141212
  Serious: Yes (Life-Threatening, Other)
  Sender: FDA-Public Use
  Company Number: CA-ABBVIE-14P-028-1197390-00

PATIENT
  Age: 6 Year
  Sex: Female

DRUGS (2)
  1. BIAXIN [Suspect]
     Indication: SINUSITIS
     Route: 048
     Dates: start: 20130108, end: 20130112
  2. ACETAMINOPHEN [Concomitant]
     Indication: PRODUCT USED FOR UNKNOWN INDICATION
     Route: 048
     Dates: start: 20130112, end: 20130112

REACTIONS (10)
  - Drug-induced liver injury [Recovered/Resolved]
  - Faeces pale [Recovered/Resolved]
  - Jaundice [Recovered/Resolved]
  - Chromaturia [Recovered/Resolved]
  - Pyrexia [Recovered/Resolved]
  - Headache [Recovered/Resolved]
  - Pruritus [Recovered/Resolved]
  - Hepatic enzyme increased [Recovered/Resolved]
  - Hepatitis acute [Recovered/Resolved]
  - Cholestasis [Recovered/Resolved]
